FAERS Safety Report 6124249-5 (Version None)
Quarter: 2009Q1

REPORT INFORMATION
  Report Type: 
  Country: None (occurrence: None)
  Receive Date: 20090319
  Receipt Date: 20090309
  Transmission Date: 20090719
  Serious: Yes (Hospitalization)
  Sender: FDA-Public Use
  Company Number: US-WYE-H08499109

PATIENT
  Sex: Female

DRUGS (20)
  1. ZOSYN [Suspect]
     Indication: LOCALISED INFECTION
     Dosage: UNKNOWN
     Route: 042
     Dates: start: 20081222, end: 20081224
  2. ZOSYN [Suspect]
     Indication: POST PROCEDURAL INFECTION
  3. PREDNISONE [Concomitant]
     Indication: SYSTEMIC LUPUS ERYTHEMATOSUS
     Route: 048
  4. LABETALOL HCL [Concomitant]
     Indication: HYPERTENSION
     Route: 048
  5. ASMANEX TWISTHALER [Concomitant]
     Indication: ASTHMA
     Route: 055
  6. ALBUTEROL [Concomitant]
     Indication: ASTHMA
     Dosage: AS NEEDED
     Route: 055
  7. COTYLENOL [Concomitant]
     Indication: PREMEDICATION
     Dosage: UNKNOWN
  8. ATIVAN [Concomitant]
     Indication: DRUG USE FOR UNKNOWN INDICATION
     Dosage: .5 MG EVERY
     Route: 048
  9. ELAVIL [Concomitant]
     Indication: DRUG USE FOR UNKNOWN INDICATION
  10. FLONASE [Concomitant]
     Indication: DRUG USE FOR UNKNOWN INDICATION
     Route: 045
  11. VALTREX [Concomitant]
     Indication: DRUG USE FOR UNKNOWN INDICATION
     Route: 048
  12. VICODIN [Concomitant]
     Indication: DRUG USE FOR UNKNOWN INDICATION
     Dosage: AS REQUIRED
     Route: 048
  13. BONIVA [Suspect]
     Indication: DRUG USE FOR UNKNOWN INDICATION
     Dosage: UNKNOWN
  14. SILVADENE [Suspect]
     Indication: LOCALISED INFECTION
     Dosage: UNKNOWN
     Route: 061
     Dates: start: 20081101
  15. SILVADENE [Suspect]
     Indication: POST PROCEDURAL INFECTION
  16. VANCOMYCIN [Suspect]
     Indication: LOCALISED INFECTION
     Dosage: UNKNOWN
     Route: 042
     Dates: start: 20081222, end: 20081228
  17. VANCOMYCIN [Suspect]
     Indication: POST PROCEDURAL INFECTION
  18. VANCOMYCIN [Suspect]
     Indication: SEPSIS
  19. CIPROFLOXACIN HCL [Suspect]
     Indication: SEPSIS
     Dosage: UNKNOWN
     Route: 042
     Dates: start: 20081224, end: 20081228
  20. REBIF [Suspect]
     Indication: MULTIPLE SCLEROSIS
     Route: 058
     Dates: start: 20060206, end: 20081226

REACTIONS (8)
  - AUTOIMMUNE HEPATITIS [None]
  - CLOSTRIDIAL INFECTION [None]
  - CONDITION AGGRAVATED [None]
  - GAMMOPATHY [None]
  - GLOMERULOSCLEROSIS [None]
  - RENAL FAILURE ACUTE [None]
  - SEPSIS [None]
  - SYSTEMIC LUPUS ERYTHEMATOSUS [None]
